FAERS Safety Report 24448968 (Version 1)
Quarter: 2024Q4

REPORT INFORMATION
  Report Type: Spontaneous
  Country: US (occurrence: US)
  Receive Date: 20241017
  Receipt Date: 20241017
  Transmission Date: 20250115
  Serious: No
  Sender: ROCHE
  Company Number: US-ROCHE-10000102179

PATIENT

DRUGS (1)
  1. ACTIVASE [Suspect]
     Active Substance: ALTEPLASE
     Indication: Vascular device occlusion
     Route: 065

REACTIONS (5)
  - Injection site extravasation [Unknown]
  - Wrong technique in product usage process [Unknown]
  - Off label use [Unknown]
  - Pruritus [Unknown]
  - Burning sensation [Unknown]
